FAERS Safety Report 5204743-1 (Version None)
Quarter: 2007Q1

REPORT INFORMATION
  Report Type: 
  Country: None (occurrence: None)
  Receive Date: 20070110
  Receipt Date: 20060705
  Transmission Date: 20070707
  Serious: Yes (Hospitalization)
  Sender: FDA-Public Use
  Company Number: US-BRISTOL-MYERS SQUIBB COMPANY-13433198

PATIENT
  Age: 46 Year
  Sex: Male
  Weight: 109 kg

DRUGS (3)
  1. ABILIFY [Suspect]
     Route: 048
     Dates: start: 20060420, end: 20060428
  2. XANAX [Concomitant]
     Dates: start: 19850101
  3. NARDIL [Concomitant]

REACTIONS (5)
  - ABDOMINAL PAIN [None]
  - ASTHENIA [None]
  - DIARRHOEA [None]
  - SOMNOLENCE [None]
  - VOMITING [None]
